FAERS Safety Report 25743478 (Version 2)
Quarter: 2025Q3

REPORT INFORMATION
  Report Type: Report from Study
  Country: CA (occurrence: CA)
  Receive Date: 20250831
  Receipt Date: 20250928
  Transmission Date: 20251021
  Serious: Yes (Other)
  Sender: ALEXION PHARMACEUTICALS
  Company Number: CA-AstraZeneca-CH-00939473A

PATIENT
  Age: 69 Year
  Sex: Female
  Weight: 72.562 kg

DRUGS (7)
  1. DURVALUMAB [Suspect]
     Active Substance: DURVALUMAB
     Indication: Small cell lung cancer limited stage
     Dosage: 1500 MILLIGRAM, Q4W
     Dates: start: 20250507, end: 20250730
  2. DONEPEZIL [Concomitant]
     Active Substance: DONEPEZIL
     Route: 065
  3. EMPAGLIFLOZIN [Concomitant]
     Active Substance: EMPAGLIFLOZIN
     Route: 065
  4. LEVETIRACETAM [Concomitant]
     Active Substance: LEVETIRACETAM
     Route: 065
  5. METFORMIN [Concomitant]
     Active Substance: METFORMIN HYDROCHLORIDE
     Route: 065
  6. ROSUVASTATIN [Concomitant]
     Active Substance: ROSUVASTATIN
     Route: 065
  7. TOLTERODINE [Concomitant]
     Active Substance: TOLTERODINE
     Route: 065

REACTIONS (2)
  - Neuropathy peripheral [Not Recovered/Not Resolved]
  - Antibody test positive [Unknown]

NARRATIVE: CASE EVENT DATE: 20250501
